APPROVED DRUG PRODUCT: DIVALPROEX SODIUM
Active Ingredient: DIVALPROEX SODIUM
Strength: EQ 250MG VALPROIC ACID
Dosage Form/Route: TABLET, DELAYED RELEASE;ORAL
Application: A077615 | Product #002
Applicant: APOTEX INC
Approved: Jul 29, 2008 | RLD: No | RS: No | Type: DISCN